FAERS Safety Report 18625099 (Version 1)
Quarter: 2020Q4

REPORT INFORMATION
  Report Type: Spontaneous
  Country: NL (occurrence: FR)
  Receive Date: 20201216
  Receipt Date: 20201216
  Transmission Date: 20210114
  Serious: Yes (Hospitalization)
  Sender: FDA-Public Use
  Company Number: FR-FRESENIUS KABI-FK202013270

PATIENT
  Age: 59 Year
  Sex: Male

DRUGS (1)
  1. ROPIVACAINE (MANUFACTURER UNKNOWN) [Suspect]
     Active Substance: ROPIVACAINE
     Indication: ANAESTHESIA
     Route: 050
     Dates: start: 20201120, end: 20201120

REACTIONS (7)
  - Dermatitis bullous [Recovering/Resolving]
  - Face oedema [Recovering/Resolving]
  - Fixed eruption [Recovering/Resolving]
  - Hyperthermia [Recovered/Resolved]
  - Therapeutic product cross-reactivity [Recovering/Resolving]
  - Hypotension [Recovered/Resolved]
  - Palatal swelling [Recovering/Resolving]

NARRATIVE: CASE EVENT DATE: 20201120
